FAERS Safety Report 9664742 (Version 2)
Quarter: 2013Q4

REPORT INFORMATION
  Report Type: Spontaneous
  Country: IT (occurrence: IT)
  Receive Date: 20131101
  Receipt Date: 20131119
  Transmission Date: 20140711
  Serious: Yes (Hospitalization)
  Sender: FDA-Public Use
  Company Number: IT-WATSON-2013-19826

PATIENT
  Age: 39 Year
  Sex: Female

DRUGS (6)
  1. DIAZEPAM (UNKNOWN) [Suspect]
     Indication: INTENTIONAL SELF-INJURY
     Dosage: 20 ML, SINGLE
     Route: 048
     Dates: start: 20130909, end: 20130909
  2. SEROQUEL [Suspect]
     Indication: INTENTIONAL SELF-INJURY
     Dosage: 9 DF, SINGLE
     Route: 048
     Dates: start: 20130909, end: 20130909
  3. FELISON [Suspect]
     Indication: INTENTIONAL SELF-INJURY
     Dosage: 12 DF, SINGLE
     Route: 048
     Dates: start: 20130909, end: 20130909
  4. TRITTICO [Concomitant]
     Indication: PRODUCT USED FOR UNKNOWN INDICATION
     Dosage: UNK, UNK
     Route: 065
  5. TOPAMAX [Concomitant]
     Indication: PRODUCT USED FOR UNKNOWN INDICATION
     Dosage: UNK, UNK
     Route: 065
  6. VENLAFAXINE [Concomitant]
     Indication: PRODUCT USED FOR UNKNOWN INDICATION
     Dosage: UNK, UNK
     Route: 065

REACTIONS (3)
  - Drug abuse [Recovered/Resolved]
  - Long QT syndrome [Recovered/Resolved]
  - Sopor [Recovered/Resolved]
